FAERS Safety Report 6412867-6 (Version None)
Quarter: 2009Q4

REPORT INFORMATION
  Report Type: 
  Country: None (occurrence: None)
  Receive Date: 20091023
  Receipt Date: 20091012
  Transmission Date: 20100525
  Serious: Yes (Other)
  Sender: FDA-Public Use
  Company Number: PHEH2009US08523

PATIENT
  Sex: Male
  Weight: 123.36 kg

DRUGS (5)
  1. DIOVAN [Suspect]
     Indication: HYPERTENSION
     Dosage: 320 MG, UNK
  2. CLONIDINE [Concomitant]
     Indication: HYPERTENSION
     Dosage: 2 PO BID
     Route: 048
     Dates: start: 20060126, end: 20060309
  3. LISINOPRIL [Concomitant]
     Dosage: UNK
     Route: 048
     Dates: start: 20060126, end: 20060309
  4. PROCARDIA [Concomitant]
     Indication: HYPERTENSION
     Route: 048
     Dates: start: 20060126, end: 20060309
  5. COZAAR [Concomitant]
     Indication: HYPERTENSION
     Dosage: UNK
     Route: 048
     Dates: start: 20060126, end: 20060309

REACTIONS (3)
  - BLOOD PRESSURE INADEQUATELY CONTROLLED [None]
  - GASTRIC BYPASS [None]
  - WRONG TECHNIQUE IN DRUG USAGE PROCESS [None]
